FAERS Safety Report 12286072 (Version 1)
Quarter: 2016Q2

REPORT INFORMATION
  Report Type: Spontaneous
  Country: FR (occurrence: FR)
  Receive Date: 20160420
  Receipt Date: 20160420
  Transmission Date: 20160815
  Serious: Yes (Life-Threatening, Hospitalization)
  Sender: FDA-Public Use
  Company Number: FR-PFIZER INC-2016216496

PATIENT
  Age: 76 Year
  Sex: Male

DRUGS (11)
  1. RAMIPRIL. [Suspect]
     Active Substance: RAMIPRIL
     Indication: HYPERTENSIVE HEART DISEASE
     Dosage: 5 MG, DAILY
     Route: 048
     Dates: start: 201402, end: 20151229
  2. PREVISCAN [Suspect]
     Active Substance: FLUINDIONE
     Indication: ATRIAL FIBRILLATION
     Dosage: UNK
     Route: 048
     Dates: start: 201402, end: 20151229
  3. BISOPROLOL FUMARATE. [Concomitant]
     Active Substance: BISOPROLOL FUMARATE
     Indication: CARDIAC DISORDER
     Dosage: UNK
     Dates: start: 2013
  4. CORDARONE [Concomitant]
     Active Substance: AMIODARONE HYDROCHLORIDE
     Indication: ARRHYTHMIA
     Dosage: UNK
     Dates: start: 201403
  5. RAMIPRIL. [Suspect]
     Active Substance: RAMIPRIL
     Indication: CARDIAC DISORDER
  6. LASILIX FAIBLE [Suspect]
     Active Substance: FUROSEMIDE
     Indication: HYPERTENSION
  7. BISOPROLOL FUMARATE. [Concomitant]
     Active Substance: BISOPROLOL FUMARATE
     Indication: HYPERTENSION
  8. RAMIPRIL. [Suspect]
     Active Substance: RAMIPRIL
     Indication: HYPERTENSION
  9. LASILIX FAIBLE [Suspect]
     Active Substance: FUROSEMIDE
     Indication: HYPERTENSIVE HEART DISEASE
     Dosage: 20 MG, DAILY
     Route: 048
     Dates: start: 201402, end: 20151229
  10. LASILIX FAIBLE [Suspect]
     Active Substance: FUROSEMIDE
     Indication: CARDIAC DISORDER
  11. LESCOL [Suspect]
     Active Substance: FLUVASTATIN SODIUM
     Indication: GLUCOSE TOLERANCE IMPAIRED
     Dosage: 40 MG, DAILY
     Route: 048
     Dates: start: 2009, end: 20151229

REACTIONS (1)
  - Ischaemic stroke [Recovering/Resolving]

NARRATIVE: CASE EVENT DATE: 20151129
